FAERS Safety Report 8986200 (Version 2)
Quarter: 2013Q1

REPORT INFORMATION
  Report Type: Spontaneous
  Country: FR (occurrence: None)
  Receive Date: 20121217
  Receipt Date: 20121231
  Transmission Date: 20140127
  Serious: Yes (Other)
  Sender: FDA-Public Use
  Company Number: MPS1-1000882

PATIENT
  Age: 1 Year
  Sex: Female
  Weight: 9.5 kg

DRUGS (1)
  1. ALDURAZYME [Suspect]
     Indication: MUCOPOLYSACCHARIDOSIS I
     Route: 042
     Dates: start: 201210

REACTIONS (3)
  - Graft versus host disease in skin [None]
  - Diarrhoea [None]
  - Stem cell transplant [None]
